FAERS Safety Report 10420050 (Version 2)
Quarter: 2014Q4

REPORT INFORMATION
  Report Type: Spontaneous
  Country: US (occurrence: None)
  Receive Date: 20140828
  Receipt Date: 20141117
  Transmission Date: 20150528
  Serious: Yes (Other)
  Sender: FDA-Public Use
  Company Number: 2014-US-010609

PATIENT
  Age: 79 Year
  Sex: Female

DRUGS (1)
  1. XYREM [Suspect]
     Active Substance: SODIUM OXYBATE
     Indication: TREMOR
     Route: 048
     Dates: start: 201011, end: 2010

REACTIONS (3)
  - Leukaemia [None]
  - Condition aggravated [None]
  - Off label use [None]
